FAERS Safety Report 4281785-4 (Version None)
Quarter: 2004Q1

REPORT INFORMATION
  Report Type: 
  Country: None (occurrence: None)
  Receive Date: 20040128
  Receipt Date: 20040115
  Transmission Date: 20041129
  Serious: Yes (Hospitalization)
  Sender: FDA-Public Use
  Company Number: US063893

PATIENT
  Age: 73 Year
  Sex: Female

DRUGS (5)
  1. ENBREL [Suspect]
     Indication: PSORIATIC ARTHROPATHY
     Dosage: 25 MG, 2 IN 1 WEEKS, SC
     Route: 058
     Dates: start: 20030331
  2. METFORMIN HYDROCHLORIDE [Concomitant]
  3. GLIMEPIRIDE [Concomitant]
  4. IRBESARTAN [Concomitant]
  5. SPIRONOLACTONE [Concomitant]

REACTIONS (4)
  - BACK PAIN [None]
  - INJURY [None]
  - INTERVERTEBRAL DISC PROTRUSION [None]
  - STAPHYLOCOCCAL SEPSIS [None]
